FAERS Safety Report 14166636 (Version 2)
Quarter: 2018Q1

REPORT INFORMATION
  Report Type: Spontaneous
  Country: JP (occurrence: JP)
  Receive Date: 20171107
  Receipt Date: 20180103
  Transmission Date: 20180508
  Serious: Yes (Other)
  Sender: FDA-Public Use
  Company Number: JP-BAYER-2017-210429

PATIENT
  Age: 79 Year
  Sex: Male

DRUGS (4)
  1. NEXAVAR [Suspect]
     Active Substance: SORAFENIB
     Indication: METASTATIC RENAL CELL CARCINOMA
     Dosage: 800MG DAILY
     Route: 048
  2. NEXAVAR [Suspect]
     Active Substance: SORAFENIB
     Indication: METASTATIC RENAL CELL CARCINOMA
     Dosage: 400MG DAILY
     Route: 048
  3. SUNITINIB [Concomitant]
     Active Substance: SUNITINIB
     Indication: METASTATIC RENAL CELL CARCINOMA
  4. NEXAVAR [Suspect]
     Active Substance: SORAFENIB
     Indication: METASTATIC RENAL CELL CARCINOMA
     Dosage: 600MG DAILY
     Route: 048

REACTIONS (3)
  - Malaise [None]
  - Renal cell carcinoma [None]
  - Palmar-plantar erythrodysaesthesia syndrome [None]
